FAERS Safety Report 4649528-X (Version None)
Quarter: 2005Q2

REPORT INFORMATION
  Report Type: 
  Country: None (occurrence: None)
  Receive Date: 20050502
  Receipt Date: 20040830
  Transmission Date: 20051028
  Serious: Yes (Disabling, Other)
  Sender: FDA-Public Use
  Company Number: PHNR2004AU01390

PATIENT
  Age: 79 Year
  Sex: Male

DRUGS (4)
  1. MELPHALAN [Concomitant]
     Indication: MULTIPLE MYELOMA
     Dosage: 16 MG, EVERY 4 DAYS
     Dates: start: 20000201, end: 20000321
  2. PREDNISOLONE [Concomitant]
     Dosage: 12.5 MG, ALTERNATE DAYS
     Dates: start: 19991201
  3. PREDNISOLONE [Concomitant]
     Dosage: 25 MG, ALTERNATE DAYS
     Dates: start: 19991201
  4. AREDIA [Suspect]
     Indication: MULTIPLE MYELOMA
     Dosage: 90 MG, QMO
     Dates: start: 20000201, end: 20040601

REACTIONS (11)
  - BONE LESION [None]
  - DYSAESTHESIA [None]
  - IMPAIRED HEALING [None]
  - JAW DISORDER [None]
  - OSTEOLYSIS [None]
  - OSTEOMYELITIS [None]
  - OSTEOMYELITIS CHRONIC [None]
  - OSTEONECROSIS [None]
  - PAIN IN JAW [None]
  - SOFT TISSUE INFECTION [None]
  - TOOTH EXTRACTION [None]
